FAERS Safety Report 9313100 (Version 1)
Quarter: 2013Q2

REPORT INFORMATION
  Report Type: Spontaneous
  Country: US (occurrence: US)
  Receive Date: 20130528
  Receipt Date: 20130528
  Transmission Date: 20140414
  Serious: No
  Sender: FDA-Public Use
  Company Number: US-ABBOTT-13P-163-1052061-00

PATIENT
  Age: 48 Year
  Sex: Male

DRUGS (4)
  1. ANDROGEL [Suspect]
     Indication: BLOOD TESTOSTERONE DECREASED
     Dosage: 1 PACKET DAILY
     Dates: start: 201301
  2. ANDROGEL [Suspect]
     Dosage: 1%-50 MG PACKET
     Dates: start: 201210, end: 201301
  3. BENICAR [Concomitant]
     Indication: PRODUCT USED FOR UNKNOWN INDICATION
  4. SIMVASTATIN [Concomitant]
     Indication: PRODUCT USED FOR UNKNOWN INDICATION

REACTIONS (2)
  - Incorrect dose administered [Not Recovered/Not Resolved]
  - Asthenia [Not Recovered/Not Resolved]
